FAERS Safety Report 10233094 (Version 3)
Quarter: 2014Q2

REPORT INFORMATION
  Report Type: Spontaneous
  Country: JP (occurrence: JP)
  Receive Date: 20140612
  Receipt Date: 20140620
  Transmission Date: 20141212
  Serious: Yes (Hospitalization, Other)
  Sender: FDA-Public Use
  Company Number: JP-ABBVIE-13P-087-1150533-00

PATIENT
  Age: 38 Year
  Sex: Male

DRUGS (17)
  1. CLARITH TAB [Suspect]
     Indication: ATYPICAL MYCOBACTERIAL INFECTION
     Route: 048
     Dates: start: 20120404
  2. MYCOBUTIN [Suspect]
     Indication: ATYPICAL MYCOBACTERIAL INFECTION
     Route: 048
     Dates: start: 20120404
  3. ESANBUTOL [Suspect]
     Indication: ATYPICAL MYCOBACTERIAL INFECTION
     Route: 048
     Dates: start: 20120404
  4. NORVIR [Concomitant]
     Indication: HIV INFECTION
     Route: 048
     Dates: start: 20120107, end: 20120404
  5. TRUVADA [Concomitant]
     Indication: HIV INFECTION
     Route: 048
     Dates: start: 20120107
  6. PREZISTANAIVE [Concomitant]
     Indication: HIV INFECTION
     Route: 048
     Dates: start: 20120107, end: 20120404
  7. ISENTRESS [Concomitant]
     Indication: HIV INFECTION
     Route: 048
     Dates: start: 20120405
  8. VALIXA [Concomitant]
     Indication: CYTOMEGALOVIRUS VIRAEMIA
     Route: 048
     Dates: start: 20120124, end: 20120203
  9. ZITHROMAC [Concomitant]
     Indication: ANTIBIOTIC PROPHYLAXIS
     Route: 048
     Dates: start: 20111215, end: 20120329
  10. ATOVAQUONE [Concomitant]
     Indication: ANTIFUNGAL PROPHYLAXIS
     Route: 048
     Dates: start: 20120803
  11. SULTAMUGIN [Concomitant]
     Indication: GASTROENTERITIS
     Route: 042
     Dates: start: 20120122, end: 20120131
  12. STREPTOMYCIN SULFATE [Concomitant]
     Indication: ATYPICAL MYCOBACTERIAL INFECTION
     Route: 042
     Dates: start: 20120404, end: 20120706
  13. BAKTAR [Concomitant]
     Indication: PNEUMOCYSTIS JIROVECII INFECTION
     Route: 048
     Dates: start: 20111215, end: 20120106
  14. BAKTAR [Concomitant]
     Indication: ANTIFUNGAL PROPHYLAXIS
     Route: 048
     Dates: start: 20120107, end: 20120803
  15. GAMOFA D [Concomitant]
     Indication: GASTRITIS
     Route: 048
     Dates: start: 20111218, end: 20120107
  16. GAMOFA D [Concomitant]
     Route: 048
     Dates: start: 20120108
  17. ITRIZOLE [Concomitant]
     Indication: ASPERGILLUS INFECTION
     Route: 048
     Dates: start: 20111228, end: 20120108

REACTIONS (1)
  - White blood cell count decreased [Not Recovered/Not Resolved]
